FAERS Safety Report 18507977 (Version 2)
Quarter: 2020Q4

REPORT INFORMATION
  Report Type: Spontaneous
  Country: CA (occurrence: CA)
  Receive Date: 20201116
  Receipt Date: 20201203
  Transmission Date: 20210114
  Serious: Yes (Other)
  Sender: FDA-Public Use
  Company Number: CA-TEVA-2020-CA-1848503

PATIENT
  Age: 77 Year
  Sex: Male

DRUGS (1)
  1. ACITRETIN UNK [Suspect]
     Active Substance: ACITRETIN
     Indication: CUTANEOUS T-CELL LYMPHOMA
     Dosage: UNK, QD
     Route: 048

REACTIONS (2)
  - Diffuse idiopathic skeletal hyperostosis [Recovering/Resolving]
  - Off label use [Unknown]
